FAERS Safety Report 21372113 (Version 2)
Quarter: 2022Q3

REPORT INFORMATION
  Report Type: Report from Study
  Country: US (occurrence: US)
  Receive Date: 20220923
  Receipt Date: 20220929
  Transmission Date: 20221027
  Serious: Yes (Other)
  Sender: FDA-Public Use
  Company Number: US-ALLERGAN-2230134US

PATIENT
  Sex: Female

DRUGS (5)
  1. ATOGEPANT [Suspect]
     Active Substance: ATOGEPANT
     Indication: Product used for unknown indication
  2. BOTOX [Suspect]
     Active Substance: ONABOTULINUMTOXINA
     Indication: Product used for unknown indication
     Dosage: UNK, SINGLE
     Dates: start: 202109, end: 202109
  3. BOTOX [Suspect]
     Active Substance: ONABOTULINUMTOXINA
     Dosage: UNK, SINGLE
     Dates: start: 202106, end: 202106
  4. EXCEDRIN MIGRAINE [Suspect]
     Active Substance: ACETAMINOPHEN\ASPIRIN\CAFFEINE
     Indication: Product used for unknown indication
  5. EMGALITY [Suspect]
     Active Substance: GALCANEZUMAB-GNLM
     Indication: Product used for unknown indication

REACTIONS (17)
  - Cataract [Unknown]
  - Vitreous haemorrhage [Not Recovered/Not Resolved]
  - Post procedural complication [Recovered/Resolved]
  - Facial paralysis [Recovered/Resolved]
  - COVID-19 [Recovered/Resolved]
  - Joint dislocation [Unknown]
  - Ulcer [Recovered/Resolved]
  - Productive cough [Unknown]
  - Chills [Unknown]
  - Pyrexia [Unknown]
  - Anosmia [Unknown]
  - Ageusia [Unknown]
  - Diarrhoea [Unknown]
  - Type 1 diabetes mellitus [Unknown]
  - Weight increased [Not Recovered/Not Resolved]
  - Headache [Unknown]
  - Drug ineffective [Unknown]

NARRATIVE: CASE EVENT DATE: 20210101
